FAERS Safety Report 17398069 (Version 1)
Quarter: 2020Q1

REPORT INFORMATION
  Report Type: Spontaneous
  Country: CH (occurrence: CH)
  Receive Date: 20200210
  Receipt Date: 20200210
  Transmission Date: 20200409
  Serious: Yes (Other)
  Sender: FDA-Public Use
  Company Number: CH-ASTRAZENECA-2020SE19243

PATIENT
  Age: 31331 Day
  Sex: Female

DRUGS (28)
  1. ASPIRIN CARDIO [Concomitant]
     Active Substance: ASPIRIN
  2. PREDNISONE. [Concomitant]
     Active Substance: PREDNISONE
     Dates: start: 20171228, end: 20180112
  3. TEMESTA [Concomitant]
     Dates: start: 20180111
  4. CALCIMAGON D3 [Concomitant]
     Active Substance: CALCIUM\CHOLECALCIFEROL
     Dates: start: 20180111
  5. EZETROL [Concomitant]
     Active Substance: EZETIMIBE
     Dates: start: 20180209
  6. BECOZYME-C FORTE [Concomitant]
     Dates: start: 20180208
  7. ATACAND PLUS [Suspect]
     Active Substance: CANDESARTAN CILEXETIL\HYDROCHLOROTHIAZIDE
     Route: 048
     Dates: end: 20180115
  8. ZYLORIC [Suspect]
     Active Substance: ALLOPURINOL
     Route: 048
     Dates: end: 20180214
  9. PLAVIX [Suspect]
     Active Substance: CLOPIDOGREL BISULFATE
     Route: 048
     Dates: start: 20180131, end: 20180216
  10. TRAMAL [Concomitant]
     Active Substance: TRAMADOL
     Dates: start: 20180108, end: 20180110
  11. MIACALCIC [Concomitant]
     Active Substance: CALCITONIN SALMON
     Dates: start: 20180119, end: 20180202
  12. ATACAND [Suspect]
     Active Substance: CANDESARTAN CILEXETIL
     Route: 048
     Dates: start: 20180116, end: 20180215
  13. MOTILIUM [Concomitant]
     Active Substance: DOMPERIDONE
     Dates: start: 20180110
  14. TEMGESIC [Concomitant]
     Active Substance: BUPRENORPHINE HYDROCHLORIDE
     Dates: start: 20180119
  15. LAXOBERON [Concomitant]
     Active Substance: SODIUM PICOSULFATE
     Dates: start: 20180111
  16. NEXIUM [Suspect]
     Active Substance: ESOMEPRAZOLE MAGNESIUM
     Route: 048
     Dates: start: 20180216
  17. ADALATE [Concomitant]
     Active Substance: NIFEDIPINE
     Dates: start: 20180108, end: 20180110
  18. PURSANA [Concomitant]
     Active Substance: FIG FRUIT OIL\SORBITOL
     Dates: start: 20180111
  19. ACLASTA [Suspect]
     Active Substance: ZOLEDRONIC ACID
     Indication: OSTEOPOROSIS
     Route: 041
     Dates: start: 20180208, end: 20180208
  20. AMLODIPINE [Suspect]
     Active Substance: AMLODIPINE BESYLATE
     Route: 048
     Dates: start: 20180119, end: 20180212
  21. TRANXILIUM [Concomitant]
     Active Substance: CLORAZEPATE DIPOTASSIUM
     Dates: end: 20180111
  22. VALIUM [Concomitant]
     Active Substance: DIAZEPAM
     Dates: start: 20180108, end: 20180110
  23. CLEXANE [Concomitant]
     Active Substance: ENOXAPARIN SODIUM
     Dates: start: 20180111, end: 20180118
  24. ACIDUM FOLICUM [Concomitant]
     Active Substance: FOLIC ACID
     Dates: start: 20180112
  25. SIMVASTATIN. [Concomitant]
     Active Substance: SIMVASTATIN
  26. TRANSTEC [Concomitant]
     Active Substance: BUPRENORPHINE
     Dates: start: 20180206
  27. DAFALGAN [Concomitant]
     Active Substance: ACETAMINOPHEN
     Dates: start: 20180108, end: 20180207
  28. GABAPENTINE [Concomitant]
     Active Substance: GABAPENTIN
     Dates: start: 20180118, end: 20180119

REACTIONS (1)
  - Fanconi syndrome [Recovered/Resolved with Sequelae]

NARRATIVE: CASE EVENT DATE: 20180214
